FAERS Safety Report 8258647-0 (Version None)
Quarter: 2012Q2

REPORT INFORMATION
  Report Type: 
  Country: None (occurrence: None)
  Receive Date: 20120403
  Receipt Date: 20120403
  Transmission Date: 20120825
  Serious: Yes (Other)
  Sender: FDA-Public Use
  Company Number: None

PATIENT
  Age: 51 Year
  Sex: Female
  Weight: 63.6 kg

DRUGS (4)
  1. KENALOG [Suspect]
     Indication: INTERVERTEBRAL DISC DISORDER
     Dosage: 80MG 2 TIMES EPIDURAL CERVICAL
     Route: 008
     Dates: start: 20120127
  2. KENALOG [Suspect]
     Indication: CERVICOBRACHIAL SYNDROME
     Dosage: 80MG 2 TIMES EPIDURAL CERVICAL
     Route: 008
     Dates: start: 20120127
  3. KENALOG [Suspect]
     Indication: INTERVERTEBRAL DISC DISORDER
     Dosage: 80MG 2 TIMES EPIDURAL CERVICAL
     Route: 008
     Dates: start: 20120221
  4. KENALOG [Suspect]
     Indication: CERVICOBRACHIAL SYNDROME
     Dosage: 80MG 2 TIMES EPIDURAL CERVICAL
     Route: 008
     Dates: start: 20120221

REACTIONS (11)
  - SWELLING FACE [None]
  - DIZZINESS [None]
  - BLOOD PRESSURE INCREASED [None]
  - HEART RATE INCREASED [None]
  - WEIGHT INCREASED [None]
  - THYROID DISORDER [None]
  - RETINAL DETACHMENT [None]
  - MUSCLE FATIGUE [None]
  - BLOOD CORTISOL INCREASED [None]
  - ASTHENIA [None]
  - HEADACHE [None]
